FAERS Safety Report 17361832 (Version 1)
Quarter: 2020Q1

REPORT INFORMATION
  Report Type: Spontaneous
  Country: US (occurrence: US)
  Receive Date: 20200131
  Receipt Date: 20200131
  Transmission Date: 20200409
  Serious: No
  Sender: FDA-Public Use
  Company Number: None

PATIENT
  Age: 76 Year
  Sex: Female
  Weight: 79.92 kg

DRUGS (22)
  1. ACETAMINOPHEN. [Concomitant]
     Active Substance: ACETAMINOPHEN
  2. OMEPRAZOLE. [Concomitant]
     Active Substance: OMEPRAZOLE
  3. VITAMIN C [Concomitant]
     Active Substance: ASCORBIC ACID
  4. FUROSEMIDE. [Concomitant]
     Active Substance: FUROSEMIDE
  5. BREO ELLIPTA [Concomitant]
     Active Substance: FLUTICASONE FUROATE\VILANTEROL TRIFENATATE
  6. CAPECITABINE. [Suspect]
     Active Substance: CAPECITABINE
     Indication: BREAST CANCER FEMALE
     Route: 048
     Dates: start: 20200114, end: 20200128
  7. FOLIC ACID. [Concomitant]
     Active Substance: FOLIC ACID
  8. FERROUS SULFATE. [Concomitant]
     Active Substance: FERROUS SULFATE
  9. DUONEB [Concomitant]
     Active Substance: ALBUTEROL SULFATE\IPRATROPIUM BROMIDE
  10. TRAMADOL. [Concomitant]
     Active Substance: TRAMADOL
  11. PROCHLORPERAZINE. [Concomitant]
     Active Substance: PROCHLORPERAZINE
  12. AZITHROMYCIN ANHYDROUS. [Concomitant]
     Active Substance: AZITHROMYCIN ANHYDROUS
  13. MUCINEX [Concomitant]
     Active Substance: GUAIFENESIN
  14. ONDANSETRON [Concomitant]
     Active Substance: ONDANSETRON
  15. VITAMIN B12 [Concomitant]
     Active Substance: CYANOCOBALAMIN
  16. MULTIVITAMIN [Concomitant]
     Active Substance: VITAMINS
  17. METHYLPREDNISOLONE. [Concomitant]
     Active Substance: METHYLPREDNISOLONE
  18. ASPIRIN. [Concomitant]
     Active Substance: ASPIRIN
  19. POTASSIUM CHLORIDE ER [Concomitant]
     Active Substance: POTASSIUM CHLORIDE
  20. LISINOPRIL. [Concomitant]
     Active Substance: LISINOPRIL
  21. OXYCODONE [Concomitant]
     Active Substance: OXYCODONE
  22. PROAIR HFA [Concomitant]
     Active Substance: ALBUTEROL SULFATE

REACTIONS (22)
  - Chills [None]
  - Clumsiness [None]
  - Balance disorder [None]
  - Lip haemorrhage [None]
  - Nausea [None]
  - Urine output decreased [None]
  - Somnolence [None]
  - Lip swelling [None]
  - Vision blurred [None]
  - Constipation [None]
  - Asthenia [None]
  - Hallucination [None]
  - Feeding disorder [None]
  - Epistaxis [None]
  - Feeling cold [None]
  - Fatigue [None]
  - Dysphagia [None]
  - Dry mouth [None]
  - Headache [None]
  - Thirst [None]
  - Confusional state [None]
  - Dyspnoea [None]

NARRATIVE: CASE EVENT DATE: 20200131
